FAERS Safety Report 5037408-X (Version None)
Quarter: 2006Q2

REPORT INFORMATION
  Report Type: 
  Country: None (occurrence: None)
  Receive Date: 20060628
  Receipt Date: 20060209
  Transmission Date: 20061013
  Serious: No
  Sender: FDA-Public Use
  Company Number: JP-BRISTOL-MYERS SQUIBB COMPANY-13287867

PATIENT
  Age: 41 Year
  Sex: Male

DRUGS (9)
  1. EFAVIRENZ [Suspect]
     Indication: HIV INFECTION
     Route: 048
     Dates: start: 20010514
  2. RETROVIR [Suspect]
     Indication: HIV INFECTION
     Dates: end: 20051107
  3. VIREAD [Suspect]
     Indication: HIV INFECTION
     Route: 048
     Dates: start: 20051108
  4. EPZICOM [Suspect]
     Indication: HIV INFECTION
     Route: 048
     Dates: start: 20050514, end: 20051107
  5. ZERIT [Concomitant]
     Dates: start: 20010514
  6. VIDEX EC [Concomitant]
     Dates: start: 20010514, end: 20050711
  7. ZIAGEN [Concomitant]
     Dates: start: 20051108
  8. BEZATOL SR [Concomitant]
  9. SOMATROPIN [Concomitant]

REACTIONS (2)
  - ALOPECIA [None]
  - NAUSEA [None]
